FAERS Safety Report 16255823 (Version 1)
Quarter: 2019Q2

REPORT INFORMATION
  Report Type: Spontaneous
  Country: US (occurrence: US)
  Receive Date: 20190429
  Receipt Date: 20190429
  Transmission Date: 20190711
  Serious: No
  Sender: FDA-Public Use
  Company Number: None

PATIENT
  Age: 63 Year
  Sex: Female
  Weight: 57.1 kg

DRUGS (8)
  1. STOOL SOFTENER (DOCUSATE) [Concomitant]
     Active Substance: DOCUSATE
  2. NEXIUM [Concomitant]
     Active Substance: ESOMEPRAZOLE MAGNESIUM
  3. ETOPOSIDE. [Suspect]
     Active Substance: ETOPOSIDE
     Indication: LUNG CARCINOMA CELL TYPE UNSPECIFIED STAGE 0
     Dosage: ?          OTHER FREQUENCY:4 DAYS EVERY 3-4WK;?
     Route: 048
     Dates: start: 20190118, end: 20190426
  4. ONDANSETRON [Concomitant]
     Active Substance: ONDANSETRON
  5. ZYPREXA [Concomitant]
     Active Substance: OLANZAPINE
  6. MULTIVITAMIN [Concomitant]
     Active Substance: VITAMINS
  7. VITAMIN B COMPLEX [Concomitant]
     Active Substance: CYANOCOBALAMIN\DEXPANTHENOL\NIACINAMIDE\PYRIDOXINE HYDROCHLORIDE\RIBOFLAVIN 5^-PHOSPHATE SODIUM\THIAMINE HYDROCHLORIDE\VITAMIN B COMPLEX
  8. COENZYME Q10 [Concomitant]
     Active Substance: UBIDECARENONE

REACTIONS (2)
  - Treatment noncompliance [None]
  - Therapy cessation [None]

NARRATIVE: CASE EVENT DATE: 20190426
